FAERS Safety Report 14252340 (Version 7)
Quarter: 2018Q2

REPORT INFORMATION
  Report Type: Report from Study
  Country: US (occurrence: US)
  Receive Date: 20171205
  Receipt Date: 20180423
  Transmission Date: 20180711
  Serious: Yes (Hospitalization)
  Sender: FDA-Public Use
  Company Number: US-SA-2017SA207805

PATIENT
  Age: 62 Year
  Sex: Female
  Weight: 54.6 kg

DRUGS (32)
  1. LIORESAL [Concomitant]
     Active Substance: BACLOFEN
     Route: 048
     Dates: end: 20171023
  2. CULTURELLE [Concomitant]
     Active Substance: LACTOBACILLUS RHAMNOSUS
     Dosage: BID MEALS
     Route: 048
     Dates: end: 20171022
  3. MEDROL [Concomitant]
     Active Substance: METHYLPREDNISOLONE
     Route: 065
  4. ROCEPHIN [Concomitant]
     Active Substance: CEFTRIAXONE SODIUM
     Route: 042
     Dates: end: 20171022
  5. VITAMIN D3 [Concomitant]
     Active Substance: CHOLECALCIFEROL
     Dosage: DOSE:5000 UNIT(S)
     Route: 048
     Dates: end: 20171023
  6. PEPCID [Concomitant]
     Active Substance: FAMOTIDINE
     Route: 048
     Dates: end: 20171023
  7. MUCINEX [Concomitant]
     Active Substance: GUAIFENESIN
     Route: 048
     Dates: end: 20171023
  8. SODIUM CHLORIDE. [Concomitant]
     Active Substance: SODIUM CHLORIDE
     Dosage: 75 ML/HR; CONTINUOUS
     Route: 042
     Dates: end: 20171023
  9. VALTREX [Concomitant]
     Active Substance: VALACYCLOVIR HYDROCHLORIDE
     Route: 048
     Dates: end: 20171023
  10. LEMTRADA [Suspect]
     Active Substance: ALEMTUZUMAB
     Indication: MULTIPLE SCLEROSIS RELAPSE
     Route: 041
     Dates: start: 20170925, end: 20170929
  11. VITAMIN C [Concomitant]
     Active Substance: ASCORBIC ACID
     Route: 048
     Dates: end: 20171023
  12. OSCAL 500-D [Concomitant]
     Dosage: BID MEALS?500 MG(1,250MG) -200 UNIT PER TABLET 1 TABLET
     Route: 048
     Dates: end: 20171023
  13. COLACE [Concomitant]
     Active Substance: DOCUSATE SODIUM
     Route: 048
     Dates: end: 20171021
  14. VITAMIN E [Concomitant]
     Active Substance: .ALPHA.-TOCOPHEROL
     Dosage: DOSE:400 UNIT(S)
     Route: 048
     Dates: end: 20171023
  15. MORPHINE SULFATE. [Concomitant]
     Active Substance: MORPHINE SULFATE
     Dosage: Q5 MIN PRN
     Route: 042
  16. NEURONTIN [Concomitant]
     Active Substance: GABAPENTIN
     Route: 048
     Dates: end: 20171023
  17. FISH OIL [Concomitant]
     Active Substance: FISH OIL
     Dosage: Q6H PRN
     Route: 048
     Dates: end: 20171023
  18. TYLENOL [Concomitant]
     Active Substance: ACETAMINOPHEN
     Dosage: Q4H PRN
     Route: 054
  19. VOLTAREN [Concomitant]
     Active Substance: DICLOFENAC SODIUM
     Dosage: BID MEALS
     Route: 048
     Dates: end: 20171023
  20. HEPARIN [Concomitant]
     Active Substance: HEPARIN SODIUM
     Dosage: Q8H SCH DOSE:5000 UNIT(S)
     Route: 058
     Dates: end: 20171023
  21. ALBUTEROL W/IPRATROPIUM [Concomitant]
     Active Substance: ALBUTEROL\IPRATROPIUM
     Route: 055
     Dates: end: 20171023
  22. VITAMINS NOS [Concomitant]
     Active Substance: VITAMINS
     Dosage: 1 EACH
     Route: 048
     Dates: end: 20171023
  23. PHENERGAN W/ CODEINE [Concomitant]
     Active Substance: CODEINE PHOSPHATE\PROMETHAZINE HYDROCHLORIDE
     Dosage: Q6H PRN
     Route: 048
     Dates: end: 20171022
  24. AMBIEN [Concomitant]
     Active Substance: ZOLPIDEM TARTRATE
     Dosage: NIGHTLY PRN
     Route: 048
     Dates: end: 20171022
  25. NITROSTAT [Concomitant]
     Active Substance: NITROGLYCERIN
     Dosage: Q5 MIN PRN
     Route: 060
  26. ATROPINE. [Concomitant]
     Active Substance: ATROPINE
     Dosage: Q5 MIN PRN
     Route: 042
  27. TYLENOL [Concomitant]
     Active Substance: ACETAMINOPHEN
     Dosage: Q4H PRN
     Route: 048
     Dates: end: 20171023
  28. MAG-OX [Concomitant]
     Active Substance: MAGNESIUM OXIDE
     Dosage: BREAKFAST
     Route: 048
     Dates: end: 20171023
  29. METAMUCIL [Concomitant]
     Active Substance: PLANTAGO SEED
     Dosage: 1 PACKET
     Route: 048
     Dates: end: 20171021
  30. ASPIRIN (E.C.) [Concomitant]
     Active Substance: ASPIRIN
     Route: 048
     Dates: end: 20171023
  31. ZITHROMAX [Concomitant]
     Active Substance: AZITHROMYCIN DIHYDRATE
     Dosage: 500 MG IN SODIUM CHLORIDE 0.9 % 250 ML
     Route: 042
     Dates: end: 20171022
  32. CLARITIN [Concomitant]
     Active Substance: LORATADINE
     Route: 048
     Dates: end: 20171023

REACTIONS (30)
  - Dyspnoea exertional [Recovered/Resolved]
  - Hyponatraemia [Recovered/Resolved]
  - Oedema peripheral [Recovered/Resolved]
  - Insomnia [Recovering/Resolving]
  - Stress urinary incontinence [Recovered/Resolved]
  - Micturition urgency [Recovering/Resolving]
  - Dysphagia [Recovered/Resolved]
  - Fall [Recovered/Resolved]
  - Pulmonary congestion [Recovered/Resolved]
  - Hypoxia [Recovered/Resolved]
  - Hypokalaemia [Recovered/Resolved]
  - Hyperglycaemia [Recovered/Resolved]
  - Chills [Recovered/Resolved]
  - Fatigue [Recovered/Resolved]
  - Dysphonia [Recovered/Resolved]
  - Systemic inflammatory response syndrome [Recovered/Resolved]
  - White blood cell count increased [Recovered/Resolved]
  - Muscular weakness [Recovering/Resolving]
  - Headache [Recovered/Resolved]
  - Urinary hesitation [Recovered/Resolved]
  - Troponin increased [Recovered/Resolved]
  - Decreased appetite [Recovered/Resolved]
  - Diarrhoea [Recovered/Resolved]
  - Sepsis [Recovered/Resolved]
  - Tachypnoea [Recovered/Resolved]
  - Pneumonia [Recovering/Resolving]
  - Urinary tract infection [Recovered/Resolved]
  - Cough [Recovered/Resolved]
  - Pyrexia [Recovered/Resolved]
  - Tachycardia [Recovered/Resolved]

NARRATIVE: CASE EVENT DATE: 20170925
